FAERS Safety Report 5550053-2 (Version None)
Quarter: 2007Q4

REPORT INFORMATION
  Report Type: 
  Country: None (occurrence: None)
  Receive Date: 20071212
  Receipt Date: 20071206
  Transmission Date: 20080405
  Serious: No
  Sender: FDA-Public Use
  Company Number: BR-BRISTOL-MYERS SQUIBB COMPANY-14000244

PATIENT
  Sex: Male

DRUGS (2)
  1. ENTECAVIR [Suspect]
     Indication: HEPATITIS B
     Dosage: INTERRUPTED ON 28-NOV-2007 AND RESTARTED ON 05-DEC-2007.
     Dates: start: 20071017
  2. TRAZODONE HCL [Interacting]
     Dosage: HALF TABLET DOSAGE
     Dates: end: 20070101

REACTIONS (5)
  - ALANINE AMINOTRANSFERASE INCREASED [None]
  - ASTHENIA [None]
  - BLOOD CREATINE PHOSPHOKINASE INCREASED [None]
  - DRUG INTERACTION [None]
  - MALAISE [None]
